FAERS Safety Report 23247351 (Version 1)
Quarter: 2023Q4

REPORT INFORMATION
  Report Type: Spontaneous
  Country: MX (occurrence: None)
  Receive Date: 20231130
  Receipt Date: 20231130
  Transmission Date: 20240110
  Serious: Yes (Hospitalization, Other)
  Sender: FDA-Public Use
  Company Number: 2023A268140

PATIENT
  Age: 68 Year
  Sex: Male

DRUGS (1)
  1. BENRALIZUMAB [Suspect]
     Active Substance: BENRALIZUMAB
     Indication: Asthma
     Route: 058
     Dates: start: 20231117

REACTIONS (4)
  - Ocular hyperaemia [Unknown]
  - Laryngospasm [Unknown]
  - Bronchospasm [Unknown]
  - Lacrimation increased [Unknown]
